FAERS Safety Report 7700822-5 (Version None)
Quarter: 2011Q3

REPORT INFORMATION
  Report Type: 
  Country: None (occurrence: None)
  Receive Date: 20110822
  Receipt Date: 20110817
  Transmission Date: 20111222
  Serious: Yes (Hospitalization, Other)
  Sender: FDA-Public Use
  Company Number: AU-PFIZER INC-2011168925

PATIENT
  Age: 54 Year
  Sex: Female
  Weight: 64 kg

DRUGS (5)
  1. ACETAMINOPHEN W/ CODEINE [Concomitant]
     Indication: PAIN
     Dosage: 500/30MG
     Route: 048
  2. XANAX [Concomitant]
     Indication: ANXIETY
     Dosage: 1 MG, UNK
     Route: 048
  3. LYRICA [Suspect]
     Indication: NEURALGIA
     Dosage: 75 MG, 2X/DAY
     Route: 048
     Dates: start: 20100907, end: 20110201
  4. LYRICA [Suspect]
     Indication: MIGRAINE
  5. CATAPRES [Concomitant]
     Indication: BLOOD PRESSURE ABNORMAL
     Dosage: 100 UG, UNK
     Route: 048

REACTIONS (3)
  - PNEUMONIA [None]
  - IMMUNE SYSTEM DISORDER [None]
  - GASTRIC DISORDER [None]
